FAERS Safety Report 25687002 (Version 1)
Quarter: 2025Q3

REPORT INFORMATION
  Report Type: Spontaneous
  Country: GB (occurrence: GB)
  Receive Date: 20250816
  Receipt Date: 20250816
  Transmission Date: 20251021
  Serious: Yes (Other)
  Sender: MSN LABORATORIES PRIVATE LIMITED
  Company Number: GB-MHRA-TPP25652154C19354900YC1754340709905

PATIENT

DRUGS (20)
  1. PREGABALIN [Suspect]
     Active Substance: PREGABALIN
     Indication: Ill-defined disorder
     Dosage: 1 TO BE TAKEN THREE TIMES DAILY
     Route: 065
     Dates: start: 20240709
  2. CODEINE [Suspect]
     Active Substance: CODEINE
     Indication: Ill-defined disorder
     Route: 065
     Dates: start: 20250729
  3. ACIDEX ADVANCE [Concomitant]
     Indication: Ill-defined disorder
     Dosage: TAKE ONE OR TWO 5ML SPOONFULS FOUR TIMES A DAY
     Route: 065
     Dates: start: 20250613, end: 20250711
  4. BISACODYL [Concomitant]
     Active Substance: BISACODYL
     Indication: Ill-defined disorder
     Dosage: UP TO 4 TABLET AT NIGHT AS NEEDED FOR CONSTIPAT...
     Route: 065
     Dates: start: 20241121
  5. BISACODYL [Concomitant]
     Active Substance: BISACODYL
     Indication: Constipation
  6. CITALOPRAM [Concomitant]
     Active Substance: CITALOPRAM
     Indication: Ill-defined disorder
     Dosage: TAKE ONE DAILY
     Route: 065
     Dates: start: 20220704
  7. CLEEN [Concomitant]
     Indication: Ill-defined disorder
     Dosage: INSERT ONE AS DIRECTED ONCE IN 24HRS
     Route: 065
     Dates: start: 20250602, end: 20250607
  8. COCODAMOL [Concomitant]
     Active Substance: ACETAMINOPHEN\CODEINE PHOSPHATE
     Indication: Ill-defined disorder
     Dosage: TAKE ONE OR TWO TABLETS UP TO FOUR TIMES A DAY WHEN REQUIRED
     Route: 065
     Dates: start: 20250716
  9. POLYETHYLENE GLYCOL 3350\POTASSIUM CHLORIDE\SODIUM BICARBONATE\SODIUM [Concomitant]
     Active Substance: POLYETHYLENE GLYCOL 3350\POTASSIUM CHLORIDE\SODIUM BICARBONATE\SODIUM CHLORIDE
     Indication: Ill-defined disorder
     Route: 065
     Dates: start: 20240530
  10. FAMOTIDINE [Concomitant]
     Active Substance: FAMOTIDINE
     Indication: Ill-defined disorder
     Route: 065
     Dates: start: 20250613
  11. FEXOFENADINE [Concomitant]
     Active Substance: FEXOFENADINE HYDROCHLORIDE
     Indication: Ill-defined disorder
     Dosage: ONE TO BE TAKEN DAILY
     Route: 065
     Dates: start: 20220719
  12. BECLOMETHASONE\FORMOTEROL [Concomitant]
     Active Substance: BECLOMETHASONE\FORMOTEROL
     Indication: Ill-defined disorder
     Dosage: INHALE TWO DOSES TWICE A DAY USING FORCEFUL INH...
     Dates: start: 20230922
  13. INCRUSE ELLIPTA [Concomitant]
     Active Substance: UMECLIDINIUM BROMIDE
     Indication: Ill-defined disorder
     Dosage: INHALE ONE DOSE DAILY USING A LONG STEADY INHAL...
     Dates: start: 20230824
  14. INVITA D3 [Concomitant]
     Indication: Ill-defined disorder
     Dosage: TAKE ONE CAPSULE DAILY
     Route: 065
     Dates: start: 20250225
  15. LANSOPRAZOLE [Concomitant]
     Active Substance: LANSOPRAZOLE
     Indication: Ill-defined disorder
     Dosage: TAKE ONE DAILY
     Route: 065
     Dates: start: 20240530, end: 20250708
  16. MONTELUKAST [Concomitant]
     Active Substance: MONTELUKAST
     Indication: Ill-defined disorder
     Dosage: TAKE ONE AT NIGHT
     Route: 065
     Dates: start: 20221010
  17. NAPROXEN [Concomitant]
     Active Substance: NAPROXEN
     Indication: Ill-defined disorder
     Dosage: TAKE ONE TWICE A DAY AFTER FOOD
     Route: 065
     Dates: start: 20250716
  18. OLANZAPINE [Concomitant]
     Active Substance: OLANZAPINE
     Indication: Ill-defined disorder
     Dosage: ONCE A DAY (OD)
     Route: 065
     Dates: start: 20220704
  19. OMEPRAZOLE [Concomitant]
     Active Substance: OMEPRAZOLE
     Indication: Ill-defined disorder
     Dosage: TAKE ONE DAILY WHEN ON NAPROXEN
     Route: 065
     Dates: start: 20250613
  20. ALBUTEROL SULFATE [Concomitant]
     Active Substance: ALBUTEROL SULFATE
     Indication: Ill-defined disorder
     Dates: start: 20241211

REACTIONS (2)
  - Anxiety [Recovered/Resolved]
  - Drug interaction [Unknown]
